FAERS Safety Report 6491425-1 (Version None)
Quarter: 2009Q4

REPORT INFORMATION
  Report Type: 
  Country: None (occurrence: None)
  Receive Date: 20091211
  Receipt Date: 20090716
  Transmission Date: 20100525
  Serious: Yes (Other)
  Sender: FDA-Public Use
  Company Number: JP-SANOFI-AVENTIS-A01200906792

PATIENT
  Age: 66 Year
  Sex: Male
  Weight: 70 kg

DRUGS (11)
  1. CLOPIDOGREL BISULFATE [Suspect]
     Indication: CORONARY ARTERY STENOSIS
     Dosage: UNIT DOSE: 75 MG
     Route: 048
     Dates: start: 20090204, end: 20090627
  2. CLOPIDOGREL BISULFATE [Suspect]
     Indication: CAROTID ARTERY STENOSIS
     Dosage: UNIT DOSE: 75 MG
     Route: 048
     Dates: start: 20090204, end: 20090627
  3. CLOPIDOGREL BISULFATE [Suspect]
     Dosage: UNIT DOSE: 75 MG
     Route: 048
     Dates: start: 20090204, end: 20090627
  4. ACETYLSALICYLIC ACID [Concomitant]
     Indication: DRUG USE FOR UNKNOWN INDICATION
     Route: 065
  5. NORVASC [Concomitant]
     Indication: DRUG USE FOR UNKNOWN INDICATION
     Route: 065
  6. MICARDIS [Concomitant]
     Indication: DRUG USE FOR UNKNOWN INDICATION
     Route: 065
  7. CRESTOR [Concomitant]
     Indication: DRUG USE FOR UNKNOWN INDICATION
     Route: 065
  8. CARDENALIN [Concomitant]
     Indication: DRUG USE FOR UNKNOWN INDICATION
     Route: 065
  9. AMARYL [Concomitant]
     Indication: DRUG USE FOR UNKNOWN INDICATION
     Route: 065
  10. LANTUS [Concomitant]
     Indication: DRUG USE FOR UNKNOWN INDICATION
     Dosage: DOSE:4 UNIT(S)
     Route: 065
  11. MUCOSTA [Concomitant]
     Indication: DRUG USE FOR UNKNOWN INDICATION
     Route: 065

REACTIONS (1)
  - HEPATIC FUNCTION ABNORMAL [None]
